FAERS Safety Report 18522893 (Version 1)
Quarter: 2020Q4

REPORT INFORMATION
  Report Type: Spontaneous
  Country: US (occurrence: US)
  Receive Date: 20201119
  Receipt Date: 20201119
  Transmission Date: 20210114
  Serious: Yes (Hospitalization, Other)
  Sender: FDA-Public Use
  Company Number: None

PATIENT
  Age: 29 Year
  Sex: Female
  Weight: 79 kg

DRUGS (2)
  1. VANCOMYCIN [Suspect]
     Active Substance: VANCOMYCIN
     Indication: LUNG ABSCESS
     Route: 042
     Dates: start: 20201004, end: 20201111
  2. CEFEPIME [Suspect]
     Active Substance: CEFEPIME HYDROCHLORIDE
     Indication: LUNG ABSCESS
     Route: 042
     Dates: start: 20201008, end: 20201111

REACTIONS (5)
  - Neutropenia [None]
  - Chills [None]
  - Malaise [None]
  - Dyspnoea [None]
  - White blood cell count decreased [None]

NARRATIVE: CASE EVENT DATE: 20201111
